FAERS Safety Report 24118841 (Version 1)
Quarter: 2024Q3

REPORT INFORMATION
  Report Type: Spontaneous
  Country: US (occurrence: US)
  Receive Date: 20240722
  Receipt Date: 20240722
  Transmission Date: 20241016
  Serious: Yes (Other)
  Sender: CHEPLAPHARM
  Company Number: US-CHEPLA-2024009097

PATIENT
  Age: 13 Year
  Sex: Male

DRUGS (18)
  1. GANCICLOVIR [Suspect]
     Active Substance: GANCICLOVIR
     Indication: Epstein-Barr virus infection
  2. GANCICLOVIR [Suspect]
     Active Substance: GANCICLOVIR
     Indication: Epstein-Barr virus infection
     Route: 042
  3. GANCICLOVIR [Suspect]
     Active Substance: GANCICLOVIR
     Indication: Epstein-Barr virus infection
     Route: 048
  4. TACROLIMUS [Suspect]
     Active Substance: TACROLIMUS
     Dosage: DAILY DOSE: 2 MILLIGRAM
  5. TACROLIMUS [Suspect]
     Active Substance: TACROLIMUS
     Dosage: SIXTH DAY?DAILY DOSE: 1 MILLIGRAM
  6. TACROLIMUS [Suspect]
     Active Substance: TACROLIMUS
     Dosage: 4TH DAY REDUCED TO 1MG?DAILY DOSE: 1 MILLIGRAM
  7. ALBUMIN HUMAN [Suspect]
     Active Substance: ALBUMIN HUMAN
  8. FUROSEMIDE [Suspect]
     Active Substance: FUROSEMIDE
  9. CETIRIZINE [Concomitant]
     Active Substance: CETIRIZINE HYDROCHLORIDE
     Dosage: DAILY DOSE: 10 MILLIGRAM
     Route: 048
  10. ONDANSETRON [Concomitant]
     Active Substance: ONDANSETRON
     Indication: Nausea
     Route: 048
  11. RIZATRIPTAN [Concomitant]
     Active Substance: RIZATRIPTAN
     Indication: Headache
  12. CIPROFLOXACIN [Concomitant]
     Active Substance: CIPROFLOXACIN
     Indication: Acute kidney injury
  13. METRONIDAZOLE [Concomitant]
     Active Substance: METRONIDAZOLE
     Indication: Acute kidney injury
  14. TAZOBACTAM [Concomitant]
     Active Substance: TAZOBACTAM
     Indication: Nephropathy toxic
  15. TAZOBACTAM [Concomitant]
     Active Substance: TAZOBACTAM
     Indication: Acute kidney injury
  16. PIPERACILLIN [Concomitant]
     Active Substance: PIPERACILLIN
     Indication: Nephropathy toxic
  17. PIPERACILLIN [Concomitant]
     Active Substance: PIPERACILLIN
     Indication: Acute kidney injury
  18. PREDNISONE [Concomitant]
     Active Substance: PREDNISONE
     Indication: Post transplant lymphoproliferative disorder
     Dosage: DAILY DOSE: 40 MILLIGRAM

REACTIONS (4)
  - Corneal endotheliitis [Unknown]
  - Bile duct necrosis [Unknown]
  - Phlebitis [Unknown]
  - Off label use [Unknown]
